FAERS Safety Report 24216887 (Version 1)
Quarter: 2024Q3

REPORT INFORMATION
  Report Type: Spontaneous
  Country: KW (occurrence: KW)
  Receive Date: 20240816
  Receipt Date: 20240816
  Transmission Date: 20241017
  Serious: Yes (Hospitalization)
  Sender: ULTRAGENYX PHARMACEUTICAL
  Company Number: KW-ULTRAGENYX PHARMACEUTICAL INC.-KW-UGX-24-00367

PATIENT
  Age: 9 Year
  Sex: Male
  Weight: 25 kg

DRUGS (7)
  1. DOJOLVI [Suspect]
     Active Substance: TRIHEPTANOIN
     Indication: Very long-chain acyl-coenzyme A dehydrogenase deficiency
     Dosage: 20 MILLIGRAM, QID
  2. CARVEDILOL [Concomitant]
     Active Substance: CARVEDILOL
     Indication: Dilated cardiomyopathy
     Dosage: 2.5 MILLIGRAM, BID
     Dates: start: 20240218
  3. LOSEC A [Concomitant]
     Indication: Product used for unknown indication
     Dosage: 40 MILLIGRAM, QD FOR 6 WEEKS
     Dates: start: 20240218
  4. LOSEC A [Concomitant]
     Dosage: 40 MILLIGRAM, QD FOR 4 WEEKS
  5. AMOXICILLIN [Concomitant]
     Active Substance: AMOXICILLIN
     Indication: Product used for unknown indication
     Dosage: UNK FOR 10 DAYS
  6. FLAGYL [Concomitant]
     Active Substance: METRONIDAZOLE\METRONIDAZOLE HYDROCHLORIDE
     Indication: Product used for unknown indication
     Dosage: UNK FOR 10 DAYS
  7. MOTILIUM [Concomitant]
     Active Substance: DOMPERIDONE
     Indication: Product used for unknown indication
     Dosage: 9 MILLIGRAM, BID

REACTIONS (6)
  - Hypoglycaemia [Recovered/Resolved]
  - Hypotension [Recovered/Resolved]
  - International normalised ratio abnormal [Recovered/Resolved]
  - Haemoglobin decreased [Unknown]
  - Vomiting [Unknown]
  - Helicobacter infection [Unknown]

NARRATIVE: CASE EVENT DATE: 20240218
